FAERS Safety Report 19071530 (Version 1)
Quarter: 2021Q1

REPORT INFORMATION
  Report Type: Spontaneous
  Country: FR (occurrence: FR)
  Receive Date: 20210330
  Receipt Date: 20210330
  Transmission Date: 20210420
  Serious: Yes (Other)
  Sender: FDA-Public Use
  Company Number: FR-BRISTOL-MYERS SQUIBB COMPANY-BMS-2021-027166

PATIENT
  Age: 83 Year
  Sex: Female
  Weight: 63.9 kg

DRUGS (2)
  1. COUMADINE [Suspect]
     Active Substance: WARFARIN SODIUM
     Indication: PULMONARY EMBOLISM
     Dosage: 4 MILLIGRAM, QD
     Route: 048
     Dates: start: 202009, end: 20210130
  2. COLCHICINE OPOCALCIUM [Interacting]
     Active Substance: COLCHICINE
     Indication: CRYSTAL ARTHROPATHY
     Route: 048
     Dates: start: 20210126, end: 20210128

REACTIONS (4)
  - Overdose [Recovered/Resolved]
  - Potentiating drug interaction [Recovered/Resolved]
  - Anaemia [Not Recovered/Not Resolved]
  - Haemoperitoneum [Recovered/Resolved]

NARRATIVE: CASE EVENT DATE: 20210126
